FAERS Safety Report 10230691 (Version 2)
Quarter: 2015Q1

REPORT INFORMATION
  Report Type: Spontaneous
  Country: FR (occurrence: FR)
  Receive Date: 20140611
  Receipt Date: 20150305
  Transmission Date: 20150720
  Serious: Yes (Life-Threatening, Other)
  Sender: FDA-Public Use
  Company Number: FR-PFIZER INC-2014156668

PATIENT
  Age: 56 Year
  Sex: Female

DRUGS (3)
  1. ZOPICLONE [Suspect]
     Active Substance: ZOPICLONE
     Dosage: 7.5 MG, 1X/DAY AT BEDTIME
     Route: 048
  2. EFFEXOR [Suspect]
     Active Substance: VENLAFAXINE HYDROCHLORIDE
     Indication: MAJOR DEPRESSION
     Dosage: 150 MG, 1X/DAY, IN THE MORNING
     Route: 048
  3. SERESTA [Suspect]
     Active Substance: OXAZEPAM
     Indication: MAJOR DEPRESSION
     Dosage: 50 MG, 1X/DAY IN THE EVENING
     Route: 048

REACTIONS (11)
  - Acute kidney injury [Recovering/Resolving]
  - Posterior reversible encephalopathy syndrome [Unknown]
  - Epilepsy [Recovered/Resolved]
  - Dehydration [Unknown]
  - Alcohol withdrawal syndrome [Unknown]
  - Hemiparesis [Recovered/Resolved]
  - Blindness cortical [Recovering/Resolving]
  - Toxicity to various agents [Unknown]
  - Confusional state [Recovered/Resolved]
  - Cerebral ischaemia [Unknown]
  - Ecchymosis [Unknown]

NARRATIVE: CASE EVENT DATE: 2014
